FAERS Safety Report 16917658 (Version 1)
Quarter: 2019Q4

REPORT INFORMATION
  Report Type: Spontaneous
  Country: FR (occurrence: FR)
  Receive Date: 20191015
  Receipt Date: 20191015
  Transmission Date: 20200122
  Serious: Yes (Death)
  Sender: FDA-Public Use
  Company Number: FR-TEVA-2019-FR-1120833

PATIENT
  Age: 53 Year
  Sex: Female
  Weight: 70 kg

DRUGS (7)
  1. RABEPRAZOLE SODIQUE [Suspect]
     Active Substance: RABEPRAZOLE SODIUM
     Indication: PRODUCT USED FOR UNKNOWN INDICATION
     Dosage: 20 MILLIGRAM PER DAY
     Route: 048
     Dates: start: 201809
  2. XELODA [Suspect]
     Active Substance: CAPECITABINE
     Indication: BREAST CANCER METASTATIC
     Dosage: 3CP - 0CP - 3CP FOR 14 DAYS, REST ONE WEEK
     Route: 048
     Dates: start: 20190212, end: 20190719
  3. VENLAFAXINE [Suspect]
     Active Substance: VENLAFAXINE HYDROCHLORIDE
     Indication: ANTIDEPRESSANT THERAPY
     Dosage: 75 MILLIGRAM PER DAY
     Route: 048
     Dates: start: 201809
  4. METOPROLOL (TARTRATE DE) [Suspect]
     Active Substance: METOPROLOL TARTRATE
     Indication: HYPERTENSION
     Dosage: 100 MILLIGRAM PER DAY
     Route: 048
     Dates: start: 201904
  5. ALPRAZOLAM. [Suspect]
     Active Substance: ALPRAZOLAM
     Indication: ANXIOLYTIC THERAPY
     Dosage: 0.5 MILLIGRAM PER DAY
     Route: 048
     Dates: start: 201809
  6. XGEVA [Suspect]
     Active Substance: DENOSUMAB
     Indication: PRODUCT USED FOR UNKNOWN INDICATION
     Dosage: 1 DOSAGE FORM EVERY 4 WEEKS
     Route: 058
     Dates: start: 201905
  7. RACECADOTRIL [Suspect]
     Active Substance: RACECADOTRIL
     Indication: PROPHYLAXIS AGAINST DIARRHOEA
     Dosage: 200 MILLIGRAM PER DAY
     Route: 048
     Dates: start: 201908

REACTIONS (1)
  - Cholestasis [Fatal]

NARRATIVE: CASE EVENT DATE: 20190717
